FAERS Safety Report 14371014 (Version 3)
Quarter: 2019Q4

REPORT INFORMATION
  Report Type: Not Available
  Country: CA (occurrence: CA)
  Receive Date: 20180110
  Receipt Date: 20191107
  Transmission Date: 20200122
  Serious: Yes (Hospitalization, Other)
  Sender: FDA-Public Use
  Company Number: CA-CELGENEUS-CAN-20180101134

PATIENT
  Age: 69 Year
  Sex: Male
  Weight: 91 kg

DRUGS (47)
  1. ATIVAN [Concomitant]
     Active Substance: LORAZEPAM
     Indication: INSOMNIA
     Dosage: 1 MILLIGRAM
     Route: 048
     Dates: start: 20170425, end: 20170505
  2. EURO-K20 [Concomitant]
     Dosage: 20 MILLIMOLE
     Route: 048
  3. LYRICA [Concomitant]
     Active Substance: PREGABALIN
     Indication: NEURALGIA
     Dosage: 150 MILLIGRAM
     Route: 048
  4. MAGNESIUM OXIDE. [Concomitant]
     Active Substance: MAGNESIUM OXIDE
     Indication: HYPOMAGNESAEMIA
     Dosage: 500 MILLIGRAM
     Route: 048
     Dates: start: 20140819
  5. EURO-K20 [Concomitant]
     Dosage: 20 MILLIMOLE
     Route: 048
  6. EURO-K20 [Concomitant]
     Dosage: 40 MILLIMOLE
     Route: 065
     Dates: start: 20170505, end: 20170505
  7. ROSUVASTATIN. [Concomitant]
     Active Substance: ROSUVASTATIN
     Dosage: 10 MILLIGRAM
     Route: 048
  8. MELPHALAN. [Suspect]
     Active Substance: MELPHALAN
     Dosage: 310 MILLIGRAM
     Route: 041
     Dates: start: 20140628, end: 20150506
  9. ASA [Concomitant]
     Active Substance: ASPIRIN
     Dosage: 81 MILLIGRAM
     Route: 048
  10. EURO-K20 [Concomitant]
     Dosage: 10 MILLIMOLE
     Route: 048
  11. FAMVIR [Concomitant]
     Active Substance: FAMCICLOVIR
     Dosage: 500 MILLIGRAM
     Route: 048
  12. PANTOPRAZOLE SODIUM. [Concomitant]
     Active Substance: PANTOPRAZOLE SODIUM
     Indication: GASTROOESOPHAGEAL REFLUX DISEASE
     Dosage: 80 MILLIGRAM
     Route: 048
     Dates: start: 20170423, end: 20170505
  13. PANTOPRAZOLE SODIUM. [Concomitant]
     Active Substance: PANTOPRAZOLE SODIUM
     Dosage: 40 MILLIGRAM
     Route: 048
  14. ROSUVASTATIN. [Concomitant]
     Active Substance: ROSUVASTATIN
     Indication: HYPERCHOLESTEROLAEMIA
     Dosage: 10 MILLIGRAM
     Route: 048
  15. CITALOPRAM [Concomitant]
     Active Substance: CITALOPRAM HYDROBROMIDE
     Indication: PRODUCT USED FOR UNKNOWN INDICATION
     Dosage: 15 MILLIGRAM
     Route: 048
  16. CITALOPRAM [Concomitant]
     Active Substance: CITALOPRAM HYDROBROMIDE
     Dosage: 5 MILLIGRAM
     Route: 048
     Dates: start: 20170910
  17. ASA [Concomitant]
     Active Substance: ASPIRIN
     Dosage: 81 MILLIGRAM
     Route: 048
  18. ATIVAN [Concomitant]
     Active Substance: LORAZEPAM
     Dosage: 1 MILLIGRAM
     Route: 048
  19. ATIVAN [Concomitant]
     Active Substance: LORAZEPAM
     Dosage: 1 MILLIGRAM
     Route: 048
  20. EURO-K20 [Concomitant]
     Dosage: 20 MILLIMOLE
     Route: 065
     Dates: start: 20170505, end: 20170505
  21. LYRICA [Concomitant]
     Active Substance: PREGABALIN
     Dosage: 75 MILLIGRAM
     Route: 048
  22. EURO-K20 [Concomitant]
     Indication: HYPOKALAEMIA
     Dosage: 10 MILLIMOLE
     Route: 041
  23. EURO-K20 [Concomitant]
     Dosage: 20 MILLIMOLE
     Route: 048
  24. FAMVIR [Concomitant]
     Active Substance: FAMCICLOVIR
     Indication: ANTIVIRAL PROPHYLAXIS
     Dosage: 500 MILLIGRAM
     Route: 048
     Dates: start: 20170421, end: 20170505
  25. LYRICA [Concomitant]
     Active Substance: PREGABALIN
     Indication: NEURALGIA
     Dosage: 150 MILLIGRAM
     Route: 048
     Dates: start: 20170421, end: 20170505
  26. PANTOPRAZOLE SODIUM. [Concomitant]
     Active Substance: PANTOPRAZOLE SODIUM
     Dosage: 40 MILLIGRAM
     Route: 048
  27. REVLIMID [Suspect]
     Active Substance: LENALIDOMIDE
     Indication: STEM CELL TRANSPLANT
     Dosage: 10 MILLIGRAM
     Route: 048
     Dates: start: 20141010, end: 20150415
  28. EURO-K20 [Concomitant]
     Dosage: 10 MILLIMOLE
     Route: 041
  29. MORPHINE SULFATE. [Concomitant]
     Active Substance: MORPHINE SULFATE
     Indication: PAIN MANAGEMENT
     Dosage: 20 MILLIGRAM
     Route: 048
     Dates: start: 20140910
  30. PANTOPRAZOLE SODIUM. [Concomitant]
     Active Substance: PANTOPRAZOLE SODIUM
     Dosage: 40 MILLIGRAM
     Route: 048
  31. BUSULFAN. [Suspect]
     Active Substance: BUSULFAN
     Indication: STEM CELL TRANSPLANT
     Dosage: 280 MILLIGRAM
     Route: 041
     Dates: start: 20140625, end: 20140627
  32. ASA [Concomitant]
     Active Substance: ASPIRIN
     Dosage: 81 MILLIGRAM
     Route: 048
  33. ATIVAN [Concomitant]
     Active Substance: LORAZEPAM
     Dosage: 1 MILLIGRAM
     Route: 048
  34. DOCUSATE [Concomitant]
     Active Substance: DOCUSATE
     Indication: CONSTIPATION
     Dosage: 200 MILLIGRAM
     Route: 048
     Dates: start: 20170429, end: 20170505
  35. DOCUSATE [Concomitant]
     Active Substance: DOCUSATE
     Indication: FAECES HARD
     Dosage: 100 MILLIGRAM
     Route: 048
  36. DOCUSATE [Concomitant]
     Active Substance: DOCUSATE
     Dosage: 200 MILLIGRAM
     Route: 048
  37. LYRICA [Concomitant]
     Active Substance: PREGABALIN
     Dosage: 150 MILLIGRAM
     Route: 048
  38. PANTOPRAZOLE SODIUM. [Concomitant]
     Active Substance: PANTOPRAZOLE SODIUM
     Dosage: 80 MILLIGRAM
     Route: 048
  39. ASA [Concomitant]
     Active Substance: ASPIRIN
     Indication: PROPHYLAXIS
     Dosage: 80 MILLIGRAM
     Route: 048
     Dates: start: 20170421, end: 20170505
  40. EURO-K20 [Concomitant]
     Dosage: 20 MILLIMOLE
     Route: 041
  41. EURO-K20 [Concomitant]
     Dosage: 20 MILLIMOLE
     Route: 065
  42. EURO-K20 [Concomitant]
     Dosage: 20 MILLIMOLE
     Route: 041
  43. EURO-K20 [Concomitant]
     Dosage: 20 MILLIMOLE
     Route: 041
  44. EURO-K20 [Concomitant]
     Dosage: 20 MILLIMOLE
     Route: 048
  45. ROSUVASTATIN. [Concomitant]
     Active Substance: ROSUVASTATIN
     Dosage: 10 MILLIGRAM
     Route: 048
     Dates: start: 20170421, end: 20170505
  46. REVLIMID [Suspect]
     Active Substance: LENALIDOMIDE
     Indication: PLASMA CELL MYELOMA
     Dosage: MAINTENANCE THERAPY
     Route: 048
     Dates: end: 20150506
  47. MELPHALAN. [Suspect]
     Active Substance: MELPHALAN
     Indication: STEM CELL TRANSPLANT
     Dosage: 310 MILLIGRAM
     Route: 041
     Dates: start: 20140628, end: 20150506

REACTIONS (2)
  - Diffuse large B-cell lymphoma [Recovered/Resolved]
  - Second primary malignancy [Recovered/Resolved]

NARRATIVE: CASE EVENT DATE: 20170419
